FAERS Safety Report 4844562-9 (Version None)
Quarter: 2005Q4

REPORT INFORMATION
  Report Type: 
  Country: None (occurrence: None)
  Receive Date: 20051130
  Receipt Date: 20051130
  Transmission Date: 20060501
  Serious: Yes (Hospitalization)
  Sender: FDA-Public Use
  Company Number: None

PATIENT
  Age: 57 Year
  Sex: Male
  Weight: 92.9874 kg

DRUGS (2)
  1. TYLENOL    650 MG [Suspect]
     Indication: PAIN
     Dosage: 650 MG
  2. TYLENOL    650 MG [Suspect]
     Indication: RENAL DISORDER
     Dosage: 650 MG

REACTIONS (2)
  - MEDICATION ERROR [None]
  - OVERDOSE [None]
